FAERS Safety Report 15417520 (Version 1)
Quarter: 2018Q3

REPORT INFORMATION
  Report Type: Spontaneous
  Country: US (occurrence: US)
  Receive Date: 20180924
  Receipt Date: 20180924
  Transmission Date: 20181010
  Serious: No
  Sender: FDA-Public Use
  Company Number: US-BAYER-2018-173154

PATIENT
  Sex: Female

DRUGS (1)
  1. CLARITIN [Suspect]
     Active Substance: LORATADINE
     Dosage: UNK
     Route: 065

REACTIONS (5)
  - Oral discomfort [Unknown]
  - Tongue discomfort [Unknown]
  - Dry mouth [Unknown]
  - Tongue dry [Unknown]
  - Dysgeusia [Unknown]
